FAERS Safety Report 8164251-5 (Version None)
Quarter: 2012Q1

REPORT INFORMATION
  Report Type: 
  Country: None (occurrence: None)
  Receive Date: 20120224
  Receipt Date: 20111031
  Transmission Date: 20120608
  Serious: No
  Sender: FDA-Public Use
  Company Number: US-ASTRAZENECA-2011SE65638

PATIENT
  Age: 61 Year
  Sex: Female
  Weight: 70.8 kg

DRUGS (8)
  1. COMCIGAN [Concomitant]
  2. METHROTREXATE [Concomitant]
  3. VIMOVO [Suspect]
     Indication: SWELLING
     Dosage: 500 MG/20 MG, EVERY DAY
     Route: 048
     Dates: start: 20111030
  4. LEUCOVORIN CALCIUM [Concomitant]
  5. PREMARIN [Concomitant]
  6. IMIPRAMINE [Concomitant]
  7. CARBAMAZEPINE [Concomitant]
     Indication: FACIAL SPASM
  8. LORAZEPAM [Concomitant]

REACTIONS (4)
  - JOINT EFFUSION [None]
  - OFF LABEL USE [None]
  - ARTHRALGIA [None]
  - FINGER DEFORMITY [None]
